FAERS Safety Report 21218688 (Version 1)
Quarter: 2022Q3

REPORT INFORMATION
  Report Type: Spontaneous
  Country: CN (occurrence: CN)
  Receive Date: 20220816
  Receipt Date: 20220816
  Transmission Date: 20221027
  Serious: Yes (Other)
  Sender: FDA-Public Use
  Company Number: CN-PFIZER INC-PV202200041860

PATIENT
  Age: 73 Year
  Sex: Male
  Weight: 60 kg

DRUGS (2)
  1. METHYLPREDNISOLONE SODIUM SUCCINATE [Suspect]
     Active Substance: METHYLPREDNISOLONE SODIUM SUCCINATE
     Indication: Panophthalmitis
     Dosage: 20 MG, 1X/DAY
     Route: 058
     Dates: start: 20220807, end: 20220807
  2. LIDOCAINE HYDROCHLORIDE [Concomitant]
     Active Substance: LIDOCAINE HYDROCHLORIDE
     Indication: Vehicle solution use
     Dosage: 1.0 ML, 1X/DAY
     Route: 058
     Dates: start: 20220807, end: 20220807

REACTIONS (1)
  - Initial insomnia [Recovered/Resolved]

NARRATIVE: CASE EVENT DATE: 20220808
